FAERS Safety Report 11297042 (Version 1)
Quarter: 2015Q3

REPORT INFORMATION
  Report Type: Spontaneous
  Country: US (occurrence: US)
  Receive Date: 20150722
  Receipt Date: 20150722
  Transmission Date: 20151125
  Serious: No
  Sender: FDA-Public Use
  Company Number: US-ELI_LILLY_AND_COMPANY-US200903007207

PATIENT
  Age: 67 Year
  Sex: Female

DRUGS (4)
  1. ADVAIR HFA [Concomitant]
     Active Substance: FLUTICASONE PROPIONATE\SALMETEROL XINAFOATE
  2. EVISTA [Suspect]
     Active Substance: RALOXIFENE HYDROCHLORIDE
     Indication: OSTEOPENIA
     Dosage: 60 MG, DAILY (1/D)
     Route: 065
     Dates: start: 20081030, end: 20090314
  3. ASPIRIN. [Concomitant]
     Active Substance: ASPIRIN
     Dosage: 81 MG, UNK
  4. XANAX [Concomitant]
     Active Substance: ALPRAZOLAM

REACTIONS (9)
  - Anxiety [Unknown]
  - Pneumonia [Unknown]
  - Dysphonia [Recovered/Resolved]
  - Cough [Recovered/Resolved]
  - Candida infection [Unknown]
  - Nodule [Unknown]
  - Polyp [Unknown]
  - Haemorrhoids [Unknown]
  - Emphysema [Unknown]

NARRATIVE: CASE EVENT DATE: 20090319
